FAERS Safety Report 5451586-X (Version None)
Quarter: 2007Q3

REPORT INFORMATION
  Report Type: 
  Country: None (occurrence: None)
  Receive Date: 20070913
  Receipt Date: 20070911
  Transmission Date: 20080115
  Serious: Yes (Other)
  Sender: FDA-Public Use
  Company Number: UG-BOEHRINGER INGELHEIM PHARMACEUTICALS, INC.-2007-DE-05419GD

PATIENT
  Age: 34 Year
  Sex: Female

DRUGS (1)
  1. TRIOMUNE [Suspect]
     Indication: HIV INFECTION

REACTIONS (7)
  - ABDOMINAL DISCOMFORT [None]
  - ANOREXIA [None]
  - HEPATIC STEATOSIS [None]
  - HYPERLACTACIDAEMIA [None]
  - NEUROPATHY PERIPHERAL [None]
  - VOMITING [None]
  - WEIGHT DECREASED [None]
